FAERS Safety Report 18530214 (Version 1)
Quarter: 2020Q4

REPORT INFORMATION
  Report Type: Spontaneous
  Country: NL (occurrence: NL)
  Receive Date: 20201120
  Receipt Date: 20201120
  Transmission Date: 20210114
  Serious: Yes (Other)
  Sender: FDA-Public Use
  Company Number: NL-EXELIXIS-CABO-20035214

PATIENT

DRUGS (1)
  1. CABOMETYX [Suspect]
     Active Substance: CABOZANTINIB S-MALATE
     Indication: SALIVARY GLAND CANCER
     Dosage: 60 MG, QD
     Route: 048

REACTIONS (3)
  - Anal abscess [Unknown]
  - Anal fistula [Unknown]
  - Off label use [Unknown]
